FAERS Safety Report 26009779 (Version 1)
Quarter: 2025Q4

REPORT INFORMATION
  Report Type: Spontaneous
  Country: CH (occurrence: CH)
  Receive Date: 20251107
  Receipt Date: 20251107
  Transmission Date: 20260117
  Serious: Yes (Hospitalization)
  Sender: ASTELLAS
  Company Number: None

PATIENT
  Age: 72 Year
  Sex: Male

DRUGS (31)
  1. MIRABEGRON [Suspect]
     Active Substance: MIRABEGRON
     Indication: Product used for unknown indication
     Route: 065
     Dates: start: 20250819, end: 20250924
  2. AZITHROMYCIN [Suspect]
     Active Substance: AZITHROMYCIN
     Indication: Productive cough
     Route: 065
     Dates: start: 20250920, end: 20250922
  3. ARIPIPRAZOLE [Suspect]
     Active Substance: ARIPIPRAZOLE
     Indication: Product used for unknown indication
     Dosage: + 2.5MG IN RESERVE
     Route: 065
     Dates: end: 20250519
  4. ARIPIPRAZOLE [Suspect]
     Active Substance: ARIPIPRAZOLE
     Dosage: + 2.5 MG IN RESERVE
     Route: 065
     Dates: start: 20250520, end: 20250918
  5. ARIPIPRAZOLE [Suspect]
     Active Substance: ARIPIPRAZOLE
     Route: 065
     Dates: start: 20250919, end: 20250924
  6. ARIPIPRAZOLE [Suspect]
     Active Substance: ARIPIPRAZOLE
     Dosage: 1X/D, RESERVE NEVER USED DURING HOSPITALIZATION?AS NECESSARY
     Route: 065
     Dates: end: 20250924
  7. ARIPIPRAZOLE [Suspect]
     Active Substance: ARIPIPRAZOLE
     Route: 065
     Dates: start: 20250919, end: 20250924
  8. ALLOPURINOL [Suspect]
     Active Substance: ALLOPURINOL
     Indication: Product used for unknown indication
     Route: 065
     Dates: start: 2020, end: 20250924
  9. DAPAGLIFLOZIN [Suspect]
     Active Substance: DAPAGLIFLOZIN
     Indication: Product used for unknown indication
     Route: 065
     Dates: start: 20231120, end: 20250924
  10. VALPROATE [Suspect]
     Active Substance: VALPROIC ACID
     Indication: Product used for unknown indication
     Route: 065
     Dates: start: 2017, end: 20250924
  11. VALPROATE [Suspect]
     Active Substance: VALPROIC ACID
     Route: 065
     Dates: start: 20250930
  12. TAMSULOSIN [Concomitant]
     Active Substance: TAMSULOSIN
     Indication: Product used for unknown indication
     Route: 065
  13. LORAZEPAM [Concomitant]
     Active Substance: LORAZEPAM
     Indication: Product used for unknown indication
     Route: 065
     Dates: start: 2019, end: 20250924
  14. LORAZEPAM [Concomitant]
     Active Substance: LORAZEPAM
     Dosage: 3X/D AS NECESSARY?IN RESERVE
     Route: 065
     Dates: start: 20251003
  15. BIPERIDEN [Concomitant]
     Active Substance: BIPERIDEN
     Indication: Product used for unknown indication
     Dosage: IN RESERVE
     Route: 065
  16. BIPERIDEN [Concomitant]
     Active Substance: BIPERIDEN
     Dosage: AS NEEDED
     Route: 065
  17. ROSUVASTATIN [Concomitant]
     Active Substance: ROSUVASTATIN
     Indication: Product used for unknown indication
     Dosage: REPLACED BY ATORVASTATIN IN VIEW OF THE PATIENT^S RENAL FUNCTION
     Route: 065
     Dates: end: 20250926
  18. CINACALCET [Concomitant]
     Active Substance: CINACALCET
     Indication: Product used for unknown indication
     Route: 065
  19. RESONIUM [Concomitant]
     Active Substance: SODIUM POLYSTYRENE SULFONATE
     Indication: Product used for unknown indication
     Route: 065
  20. SODIUM BICARBONATE [Concomitant]
     Active Substance: SODIUM BICARBONATE
     Indication: Product used for unknown indication
     Route: 065
  21. ESOMEPRAZOLE [Concomitant]
     Active Substance: ESOMEPRAZOLE
     Indication: Product used for unknown indication
     Route: 065
  22. PERINDOPRIL [Concomitant]
     Active Substance: PERINDOPRIL
     Indication: Product used for unknown indication
     Route: 065
     Dates: start: 2020, end: 20250924
  23. CALCIUM CARBONATE\CHOLECALCIFEROL [Concomitant]
     Active Substance: CALCIUM CARBONATE\CHOLECALCIFEROL
     Indication: Product used for unknown indication
     Dosage: 1000/800 1X/D
     Route: 065
     Dates: start: 202501, end: 20250924
  24. THIAMINE HYDROCHLORIDE [Concomitant]
     Active Substance: THIAMINE HYDROCHLORIDE
     Indication: Product used for unknown indication
     Route: 065
     Dates: start: 2022, end: 20250924
  25. CALCITRIOL [Concomitant]
     Active Substance: CALCITRIOL
     Indication: Product used for unknown indication
     Route: 065
     Dates: end: 20250924
  26. SINTROM [Concomitant]
     Active Substance: ACENOCOUMAROL
     Indication: Product used for unknown indication
     Route: 065
  27. TRAVATAN [Concomitant]
     Active Substance: TRAVOPROST
     Indication: Product used for unknown indication
     Dosage: 1X/D RIGHT EYE + LEFT EYE
     Route: 065
     Dates: start: 2018, end: 20250924
  28. ACETAMINOPHEN [Concomitant]
     Active Substance: ACETAMINOPHEN
     Indication: Product used for unknown indication
     Dosage: 3X/D, AS NECESSARY, IN RESERVE
     Route: 065
  29. SODIUM PICOSULFATE [Concomitant]
     Active Substance: SODIUM PICOSULFATE
     Indication: Product used for unknown indication
     Dosage: 1X/D, AS NECESSARY
     Route: 065
  30. COLCHICINE [Concomitant]
     Active Substance: COLCHICINE
     Indication: Product used for unknown indication
     Route: 065
     Dates: end: 20250924
  31. Carbomerum [Concomitant]
     Indication: Product used for unknown indication
     Dosage: IN RESERVE (ARTIFICIAL TEARS)
     Route: 065
     Dates: end: 20250924

REACTIONS (4)
  - Purpura [Recovered/Resolved]
  - Cutaneous vasculitis [Recovered/Resolved]
  - Thrombocytopenia [Recovered/Resolved]
  - Acute kidney injury [Recovered/Resolved]

NARRATIVE: CASE EVENT DATE: 20250924
